FAERS Safety Report 8056223-6 (Version None)
Quarter: 2012Q1

REPORT INFORMATION
  Report Type: 
  Country: None (occurrence: None)
  Receive Date: 20120119
  Receipt Date: 20120111
  Transmission Date: 20120608
  Serious: Yes (Hospitalization)
  Sender: FDA-Public Use
  Company Number: PHHY2012US002977

PATIENT
  Age: 57 Year
  Sex: Female

DRUGS (1)
  1. PHENTERMINE [Suspect]
     Indication: WEIGHT DECREASED
     Dosage: 30 MG, UNK

REACTIONS (3)
  - COLITIS ISCHAEMIC [None]
  - HAEMATOCHEZIA [None]
  - ABDOMINAL PAIN LOWER [None]
